FAERS Safety Report 4601932-1 (Version None)
Quarter: 2005Q2

REPORT INFORMATION
  Report Type: 
  Country: None (occurrence: None)
  Receive Date: 20050215
  Receipt Date: 20041201
  Transmission Date: 20051028
  Serious: Yes (Other)
  Sender: FDA-Public Use
  Company Number: 388107

PATIENT
  Sex: Male

DRUGS (2)
  1. PEGASYS [Suspect]
     Dosage: OTHER
     Route: 050
  2. COPEGUS [Suspect]
     Dosage: ORAL
     Route: 048

REACTIONS (1)
  - PNEUMONIA [None]
